FAERS Safety Report 9840927 (Version 1)
Quarter: 2013Q4

REPORT INFORMATION
  Report Type: Spontaneous
  Country: US (occurrence: None)
  Receive Date: 20131212
  Receipt Date: 20131212
  Transmission Date: 20140711
  Serious: Yes (Hospitalization)
  Sender: FDA-Public Use
  Company Number: 20131007CINRY5127

PATIENT
  Age: 48 Year
  Sex: Female

DRUGS (2)
  1. CINRYZE [Suspect]
     Indication: HEREDITARY ANGIOEDEMA
     Dosage: (1500 UNIT, 2 IN 1 WK), INTRAVENOUS
     Route: 042
     Dates: start: 20100428
  2. CINRYZE [Suspect]
     Dosage: (1500 UNIT, 2 IN 1 WK), INTRAVENOUS
     Route: 042
     Dates: start: 20100428

REACTIONS (2)
  - Hereditary angioedema [None]
  - Therapy change [None]
